FAERS Safety Report 10406671 (Version 1)
Quarter: 2014Q3

REPORT INFORMATION
  Report Type: Spontaneous
  Country: US (occurrence: US)
  Receive Date: 20140825
  Receipt Date: 20140825
  Transmission Date: 20150326
  Serious: No
  Sender: FDA-Public Use
  Company Number: US-PFIZER INC-2014231946

PATIENT
  Age: 64 Year
  Sex: Female

DRUGS (2)
  1. OMEPRAZOLE. [Suspect]
     Active Substance: OMEPRAZOLE
     Indication: ARTHRITIS
     Dosage: 20 MG, ONCE A DAY
  2. IBUPROFEN. [Suspect]
     Active Substance: IBUPROFEN
     Indication: ARTHRITIS
     Dosage: 400 MG, THREE TIMES A DAY
     Dates: start: 201211

REACTIONS (4)
  - Musculoskeletal stiffness [Unknown]
  - Activities of daily living impaired [Unknown]
  - Drug effect incomplete [Unknown]
  - Condition aggravated [Unknown]
